FAERS Safety Report 10768802 (Version 1)
Quarter: 2015Q1

REPORT INFORMATION
  Report Type: Spontaneous
  Country: IN (occurrence: None)
  Receive Date: 20150204
  Receipt Date: 20150204
  Transmission Date: 20150721
  Serious: Yes (Hospitalization)
  Sender: FDA-Public Use
  Company Number: 2015010170

PATIENT
  Age: 12 Year
  Sex: Male

DRUGS (2)
  1. ZINC ACETATE (ZINC ACETATE) [Concomitant]
  2. PENICILLAMINE (PENICILLAMINE) [Suspect]
     Active Substance: PENICILLAMINE
     Indication: HEPATO-LENTICULAR DEGENERATION
     Route: 048

REACTIONS (13)
  - Irritability [None]
  - Mood swings [None]
  - Decreased appetite [None]
  - Liver disorder [None]
  - Abnormal behaviour [None]
  - Anxiety [None]
  - Delusion of reference [None]
  - Psychomotor hyperactivity [None]
  - Fear [None]
  - Psychotic disorder [None]
  - Persecutory delusion [None]
  - Agitation [None]
  - Disinhibition [None]
